FAERS Safety Report 23859308 (Version 1)
Quarter: 2024Q2

REPORT INFORMATION
  Report Type: Spontaneous
  Country: US (occurrence: US)
  Receive Date: 20240515
  Receipt Date: 20240515
  Transmission Date: 20240716
  Serious: No
  Sender: FDA-Public Use
  Company Number: US-Eisai Medical Research-EC-2014-002257

PATIENT
  Age: 62 Year
  Sex: Female

DRUGS (16)
  1. FYCOMPA [Suspect]
     Active Substance: PERAMPANEL
     Indication: Seizure
     Route: 048
     Dates: start: 20140811, end: 201410
  2. FYCOMPA [Suspect]
     Active Substance: PERAMPANEL
     Indication: Insomnia
     Dosage: 6 MG 3 DAYS/WEEK AND 4 MG 4 DAYS/WEEK
     Route: 048
     Dates: start: 201410, end: 201411
  3. FYCOMPA [Suspect]
     Active Substance: PERAMPANEL
     Dosage: 6 MG 4 DAYS/WEEK AND 4 MG 3 DAYS/WEEK
     Route: 048
     Dates: start: 201411
  4. FYCOMPA [Suspect]
     Active Substance: PERAMPANEL
     Route: 048
  5. FYCOMPA [Suspect]
     Active Substance: PERAMPANEL
     Dosage: DOSE AND FREQUENCY UNKNOWN
     Route: 048
  6. FYCOMPA [Suspect]
     Active Substance: PERAMPANEL
     Route: 048
  7. KEPPRA [Concomitant]
     Active Substance: LEVETIRACETAM
     Indication: Seizure
     Route: 048
  8. KEPPRA [Concomitant]
     Active Substance: LEVETIRACETAM
     Dosage: 3 PILLS IN THE AM AND 3 PILLS IN THE PM
     Route: 048
  9. ONFI [Concomitant]
     Active Substance: CLOBAZAM
     Indication: Seizure
     Route: 048
  10. ONFI [Concomitant]
     Active Substance: CLOBAZAM
     Dosage: 3 1/2 TABS AT NIGHT ONLY
     Route: 048
  11. GABAPENTIN [Concomitant]
     Active Substance: GABAPENTIN
     Indication: Neuropathy peripheral
     Route: 048
  12. VITAMIN B [Concomitant]
     Active Substance: VITAMIN B
     Indication: Nutritional supplementation
     Dosage: DOSE AND FREQUENCY UNKNOWN
     Route: 065
  13. VITAMIN D [Concomitant]
     Active Substance: VITAMIN D NOS
     Indication: Nutritional supplementation
     Dosage: DOSE AND FREQUENCY UNKNOWN
     Route: 065
  14. VITAMINS [Concomitant]
     Active Substance: VITAMINS
     Indication: Nutritional supplementation
     Dosage: DOSE AND FREQUENCY UNKNOWN
     Route: 065
  15. LORAZEPAM [Concomitant]
     Active Substance: LORAZEPAM
     Indication: Seizure
     Route: 048
  16. VIMPAT [Concomitant]
     Active Substance: LACOSAMIDE
     Indication: Seizure
     Route: 048

REACTIONS (10)
  - Dizziness [Not Recovered/Not Resolved]
  - Fatigue [Not Recovered/Not Resolved]
  - Seizure [Unknown]
  - Diverticulitis [Recovering/Resolving]
  - Nephrolithiasis [Not Recovered/Not Resolved]
  - Bronchitis [Unknown]
  - Muscle spasms [Unknown]
  - Hypertension [Unknown]
  - Off label use [Not Recovered/Not Resolved]
  - Dust allergy [Unknown]

NARRATIVE: CASE EVENT DATE: 20140801
